FAERS Safety Report 12388577 (Version 1)
Quarter: 2016Q2

REPORT INFORMATION
  Report Type: Spontaneous
  Country: US (occurrence: None)
  Receive Date: 20160519
  Receipt Date: 20160519
  Transmission Date: 20160815
  Serious: Yes (Disabling)
  Sender: FDA-Public Use
  Company Number: None

PATIENT
  Age: 40 Year
  Sex: Female
  Weight: 77.11 kg

DRUGS (4)
  1. TRAZODONE [Concomitant]
     Active Substance: TRAZODONE HYDROCHLORIDE
  2. ACIDOPHILUS [Concomitant]
     Active Substance: LACTOBACILLUS ACIDOPHILUS
  3. COLACE [Concomitant]
     Active Substance: DOCUSATE SODIUM
  4. CIPRO [Suspect]
     Active Substance: CIPROFLOXACIN HYDROCHLORIDE
     Dates: start: 20151103, end: 20151107

REACTIONS (5)
  - Muscle spasms [None]
  - Paraesthesia [None]
  - Depression [None]
  - Activities of daily living impaired [None]
  - Tendonitis [None]

NARRATIVE: CASE EVENT DATE: 20151116
